FAERS Safety Report 24286411 (Version 1)
Quarter: 2024Q3

REPORT INFORMATION
  Report Type: Spontaneous
  Country: HU (occurrence: HU)
  Receive Date: 20240905
  Receipt Date: 20240905
  Transmission Date: 20241016
  Serious: Yes (Other)
  Sender: FRESENIUS KABI
  Company Number: HU-CELLTRION INC.-2024HU019760

PATIENT
  Age: 71 Year
  Sex: Female

DRUGS (5)
  1. CARBOPLATIN [Suspect]
     Active Substance: CARBOPLATIN
     Indication: Ovarian cancer
     Dosage: ON MAY 27, 2024, SHE RECEIVED HER LAST TREATMENT WITH MVAST + PACLITAXEL + CARBOPLATIN. ON JUNE 24,
     Dates: end: 20240624
  2. PACLITAXEL [Suspect]
     Active Substance: PACLITAXEL
     Indication: Ovarian cancer
     Dosage: ON MAY 27, 2024, SHE RECEIVED HER LAST TREATMENT WITH MVAST + PACLITAXEL + CARBOPLATIN. ON JUNE 24,
  3. VEGZELMA [Suspect]
     Active Substance: BEVACIZUMAB-ADCD
     Indication: Ovarian cancer
     Dosage: 1000 MG INFUSION OVER 60 MINUTES (400 MG/16 ML INFUSION)?FOA: CONCENTRATE FOR SOLUTION FOR INFUSION
     Route: 042
  4. VEGZELMA [Suspect]
     Active Substance: BEVACIZUMAB-ADCD
     Dosage: 1000 MG INFUSION OVER 60 MINUTES?FOA: CONCENTRATE FOR SOLUTION FOR INFUSION
     Route: 042
     Dates: start: 20240715
  5. VEGZELMA [Suspect]
     Active Substance: BEVACIZUMAB-ADCD
     Dosage: 1000 MG INFUSION OVER 60 MINUTES (100 MG/4 ML INFUSION)?FOA: CONCENTRATE FOR SOLUTION FOR INFUSION
     Route: 042

REACTIONS (2)
  - Toxic skin eruption [Unknown]
  - Product quality issue [Unknown]
